FAERS Safety Report 5984324-2 (Version None)
Quarter: 2008Q4

REPORT INFORMATION
  Report Type: 
  Country: None (occurrence: None)
  Receive Date: 20081208
  Receipt Date: 20081128
  Transmission Date: 20090506
  Serious: Yes (Hospitalization)
  Sender: FDA-Public Use
  Company Number: PHHY2008CH29955

PATIENT
  Age: 72 Year
  Sex: Male

DRUGS (6)
  1. VOLTAREN [Suspect]
     Indication: PAIN
     Dosage: UNK
     Dates: start: 20080401, end: 20080430
  2. ASPIRIN [Suspect]
     Dosage: 100 MG/D
     Dates: end: 20080430
  3. MARCUMAR [Suspect]
     Dosage: UNK
     Dates: end: 20080430
  4. SIMVASTATIN [Concomitant]
     Dosage: UNK
  5. METOPROLOL TARTRATE [Concomitant]
     Dosage: UNK
  6. KCL-ZYMA [Concomitant]
     Dosage: UNK

REACTIONS (11)
  - ENDOSCOPY UPPER GASTROINTESTINAL TRACT [None]
  - GASTROINTESTINAL SURGERY [None]
  - GASTROINTESTINAL ULCER HAEMORRHAGE [None]
  - HAEMATEMESIS [None]
  - HAEMOGLOBIN DECREASED [None]
  - HAEMORRHAGIC ANAEMIA [None]
  - HYPOTENSION [None]
  - MALAISE [None]
  - MECHANICAL VENTILATION [None]
  - NAUSEA [None]
  - SHOCK HAEMORRHAGIC [None]
